FAERS Safety Report 9306237 (Version 1)
Quarter: 2013Q2

REPORT INFORMATION
  Report Type: Spontaneous
  Country: US (occurrence: US)
  Receive Date: 20130523
  Receipt Date: 20130523
  Transmission Date: 20140414
  Serious: Yes (Other)
  Sender: FDA-Public Use
  Company Number: US-JNJFOC-20130511244

PATIENT
  Sex: Female
  Weight: 115.67 kg

DRUGS (2)
  1. SUDAFED [Suspect]
     Route: 048
  2. SUDAFED [Suspect]
     Indication: PRODUCT USED FOR UNKNOWN INDICATION
     Dosage: LASTLY TOOK IN EARLY NINETIES
     Route: 048

REACTIONS (4)
  - Asthma [Recovered/Resolved]
  - Panic disorder [Recovered/Resolved]
  - Therapeutic response increased [Unknown]
  - Throat tightness [Recovered/Resolved]
